FAERS Safety Report 12798093 (Version 3)
Quarter: 2016Q4

REPORT INFORMATION
  Report Type: Spontaneous
  Country: CZ (occurrence: CZ)
  Receive Date: 20160930
  Receipt Date: 20161020
  Transmission Date: 20170207
  Serious: Yes (Life-Threatening, Hospitalization, Disabling, Other)
  Sender: FDA-Public Use
  Company Number: CZ-AMGEN-CZESP2016105773

PATIENT
  Age: 23 Year
  Sex: Male

DRUGS (2)
  1. ENBREL [Suspect]
     Active Substance: ETANERCEPT
     Indication: SPONDYLITIS
     Dosage: 50 MG, ONCE IN 18 DAYS
     Route: 058
     Dates: start: 20120401
  2. ENBREL [Suspect]
     Active Substance: ETANERCEPT
     Dosage: 50 MG, ONCE IN 8 DAYS
     Route: 058
     Dates: end: 20160415

REACTIONS (5)
  - Condition aggravated [Unknown]
  - Intentional product misuse [Unknown]
  - Crohn^s disease [Not Recovered/Not Resolved]
  - Abdominal sepsis [Unknown]
  - Appendicitis [Unknown]

NARRATIVE: CASE EVENT DATE: 20160418
